FAERS Safety Report 10191515 (Version 2)
Quarter: 2014Q2

REPORT INFORMATION
  Report Type: Spontaneous
  Country: JP (occurrence: JP)
  Receive Date: 20140523
  Receipt Date: 20140630
  Transmission Date: 20141212
  Serious: Yes (Death)
  Sender: FDA-Public Use
  Company Number: JP-MYLANLABS-2014S1011452

PATIENT
  Age: 13 Year
  Sex: Female

DRUGS (3)
  1. CISPLATIN [Suspect]
     Indication: OVARIAN DYSGERMINOMA STAGE III
     Route: 041
  2. BLEO [Suspect]
     Indication: OVARIAN DYSGERMINOMA STAGE III
     Route: 041
  3. ETOPOSIDE [Suspect]
     Indication: OVARIAN DYSGERMINOMA STAGE III
     Route: 041

REACTIONS (1)
  - Interstitial lung disease [Fatal]
